FAERS Safety Report 7777424-8 (Version None)
Quarter: 2011Q3

REPORT INFORMATION
  Report Type: 
  Country: None (occurrence: None)
  Receive Date: 20110926
  Receipt Date: 20110920
  Transmission Date: 20111222
  Serious: Yes (Hospitalization)
  Sender: FDA-Public Use
  Company Number: DE-SANOFI-AVENTIS-2011SA017959

PATIENT
  Age: 80 Year
  Sex: Female
  Weight: 72 kg

DRUGS (8)
  1. SIMVASTATIN [Concomitant]
     Dosage: 0-0-1
     Route: 048
  2. AMLODIPINE [Concomitant]
     Indication: HYPERTENSION
     Dosage: 1-0-1
     Route: 048
  3. BISOPROLOL FUMARATE [Concomitant]
     Indication: HYPERTENSION
     Dosage: 0-0-1
     Route: 048
  4. OXYCODONE [Concomitant]
     Dosage: 1 DF = 5/2.5 MG
     Route: 048
  5. LOSARTAN POTASSIUM [Concomitant]
     Route: 065
  6. MULTAQ [Suspect]
     Route: 048
     Dates: end: 20101101
  7. MARCUMAR [Concomitant]
     Route: 048
  8. SPIRONOLACTONE [Concomitant]
     Route: 065

REACTIONS (1)
  - THROMBOCYTOPENIA [None]
